FAERS Safety Report 8986768 (Version 1)
Quarter: 2012Q4

REPORT INFORMATION
  Report Type: 
  Country: US (occurrence: US)
  Receive Date: 20121226
  Receipt Date: 20121226
  Transmission Date: 20130627
  Serious: Yes (Death, Hospitalization)
  Sender: FDA-Public Use
  Company Number: US-MPIJNJ-2012-09022

PATIENT
  Age: 50 Year
  Sex: Female

DRUGS (1)
  1. VELCADE [Suspect]
     Indication: MULTIPLE MYELOMA
     Dosage: UNK

REACTIONS (3)
  - Death [Fatal]
  - Sepsis [Unknown]
  - Dyspnoea [Unknown]
